FAERS Safety Report 16271913 (Version 2)
Quarter: 2019Q2

REPORT INFORMATION
  Report Type: Report from Study
  Country: US (occurrence: US)
  Receive Date: 20190503
  Receipt Date: 20190529
  Transmission Date: 20190711
  Serious: Yes (Other)
  Sender: FDA-Public Use
  Company Number: US-SA-2019SA117524

PATIENT
  Age: 87 Year
  Sex: Male

DRUGS (1)
  1. INSULIN GLARGINE [Suspect]
     Active Substance: INSULIN GLARGINE
     Indication: TYPE 2 DIABETES MELLITUS
     Dosage: 22 U, HS
     Route: 058

REACTIONS (2)
  - Macular degeneration [Unknown]
  - Needle issue [Unknown]

NARRATIVE: CASE EVENT DATE: 20170915
